FAERS Safety Report 10714902 (Version 3)
Quarter: 2015Q1

REPORT INFORMATION
  Report Type: Report from Study
  Country: US (occurrence: US)
  Receive Date: 20150115
  Receipt Date: 20150224
  Transmission Date: 20150721
  Serious: Yes (Death, Hospitalization)
  Sender: FDA-Public Use
  Company Number: US-ACTELION-A-US2015-110994

PATIENT
  Age: 62 Year
  Sex: Female

DRUGS (2)
  1. TRACLEER [Suspect]
     Active Substance: BOSENTAN\BOSENTAN MONOHYDRATE
     Indication: PULMONARY ARTERIAL HYPERTENSION
     Dosage: 125 MG, BID
     Route: 048
     Dates: start: 2007, end: 20150114
  2. SILDENAFIL. [Suspect]
     Active Substance: SILDENAFIL
     Indication: PULMONARY ARTERIAL HYPERTENSION
     Dosage: 90 MG, TID
     Route: 048
     Dates: start: 2003

REACTIONS (5)
  - Pulmonary arterial hypertension [Fatal]
  - Cardiac disorder [Fatal]
  - Dyspnoea [Fatal]
  - Aneurysm ruptured [Fatal]
  - Disease progression [Fatal]

NARRATIVE: CASE EVENT DATE: 20150114
